FAERS Safety Report 20405467 (Version 1)
Quarter: 2022Q1

REPORT INFORMATION
  Report Type: Spontaneous
  Country: US (occurrence: None)
  Receive Date: 20220129
  Receipt Date: 20220129
  Transmission Date: 20220423
  Serious: Yes (Other)
  Sender: FDA-Public Use
  Company Number: None

PATIENT
  Age: 75 Year
  Sex: Female
  Weight: 53.1 kg

DRUGS (1)
  1. CREON [Suspect]
     Active Substance: PANCRELIPASE AMYLASE\PANCRELIPASE LIPASE\PANCRELIPASE PROTEASE
     Indication: Diarrhoea
     Dosage: OTHER QUANTITY : 3 CAPSULE(S);?OTHER FREQUENCY : 2 BEFORE MEALS;?
     Route: 048
     Dates: start: 20220127, end: 20220127

REACTIONS (8)
  - Abdominal pain upper [None]
  - Flatulence [None]
  - Diarrhoea [None]
  - Vomiting [None]
  - Dizziness [None]
  - Asthenia [None]
  - Chills [None]
  - Dry mouth [None]

NARRATIVE: CASE EVENT DATE: 20220127
